FAERS Safety Report 7905916-7 (Version None)
Quarter: 2011Q4

REPORT INFORMATION
  Report Type: 
  Country: None (occurrence: None)
  Receive Date: 20111108
  Receipt Date: 20111017
  Transmission Date: 20120403
  Serious: Yes (Congenital Anomaly)
  Sender: FDA-Public Use
  Company Number: ADR-UNK-040

PATIENT
  Age: 238 Day
  Sex: Male
  Weight: 1.55 kg

DRUGS (4)
  1. TENOFOVIR DISOPROXIL FUMARATE (VIREAD, TDF)- 300 MG/DAY [Concomitant]
  2. NEVIRAPINE [Suspect]
     Indication: ACQUIRED IMMUNODEFICIENCY SYNDROME
     Dosage: 400 MG/DAY + ORAL
     Route: 048
     Dates: start: 20091015, end: 20100215
  3. LOPINAVIR AND RITONAVIR (KALETRA, ALUVIA, LPV/R)- 4 TABS/DAY [Concomitant]
  4. LAMIVUDINE + ZIDOVUDINE [Suspect]
     Indication: ACQUIRED IMMUNODEFICIENCY SYNDROME
     Dosage: BID + ORAL
     Route: 048
     Dates: start: 20091015

REACTIONS (2)
  - MATERNAL DRUGS AFFECTING FOETUS [None]
  - VENTRICULAR SEPTAL DEFECT [None]
